FAERS Safety Report 9917465 (Version 1)
Quarter: 2014Q1

REPORT INFORMATION
  Report Type: Spontaneous
  Country: US (occurrence: US)
  Receive Date: 20140221
  Receipt Date: 20140221
  Transmission Date: 20141002
  Serious: No
  Sender: FDA-Public Use
  Company Number: US-PFIZER INC-2014050625

PATIENT
  Sex: Female
  Weight: 53.52 kg

DRUGS (2)
  1. NEURONTIN [Suspect]
     Indication: NEUROPATHY PERIPHERAL
     Dosage: 600 MG, 4X/DAY
  2. NEURONTIN [Suspect]
     Indication: NERVE INJURY

REACTIONS (2)
  - Local swelling [Unknown]
  - Pain [Unknown]
